FAERS Safety Report 12857436 (Version 1)
Quarter: 2016Q4

REPORT INFORMATION
  Report Type: Not Available
  Country: None (occurrence: US)
  Receive Date: 20161018
  Receipt Date: 20161018
  Transmission Date: 20170207
  Serious: No
  Sender: FDA-Public Use
  Company Number: US-AKORN-15852

PATIENT
  Age: 42 Year
  Sex: Female

DRUGS (1)
  1. PROMETHAZINE HCL + CODEINE PHOSPHATE SYRUP [Suspect]
     Active Substance: CODEINE PHOSPHATE\PROMETHAZINE HYDROCHLORIDE

REACTIONS (5)
  - Parosmia [Recovered/Resolved]
  - Nausea [Recovered/Resolved]
  - Drug ineffective [Recovered/Resolved]
  - Dysgeusia [Recovered/Resolved]
  - Migraine [Recovered/Resolved]
